FAERS Safety Report 5087762-8 (Version None)
Quarter: 2006Q3

REPORT INFORMATION
  Report Type: 
  Country: None (occurrence: None)
  Receive Date: 20060821
  Receipt Date: 20060821
  Transmission Date: 20061208
  Serious: Yes (Life-Threatening, Hospitalization, Other)
  Sender: FDA-Public Use
  Company Number: None

PATIENT
  Age: 50 Year
  Sex: Female
  Weight: 65.7716 kg

DRUGS (1)
  1. COLGATE TOTAL TOOTHPASTE COLGATE [Suspect]
     Indication: DENTAL CARE
     Dosage: 3 X A DAY    DENTAL
     Route: 004
     Dates: start: 20060729, end: 20060812

REACTIONS (4)
  - ABASIA [None]
  - APHASIA [None]
  - MALAISE [None]
  - STOMATITIS [None]
